FAERS Safety Report 8079478-0 (Version None)
Quarter: 2012Q1

REPORT INFORMATION
  Report Type: 
  Country: None (occurrence: None)
  Receive Date: 20120128
  Receipt Date: 20110826
  Transmission Date: 20120608
  Serious: No
  Sender: FDA-Public Use
  Company Number: US-ABBOTT-11P-163-0849447-00

PATIENT
  Age: 31 Year
  Sex: Male

DRUGS (6)
  1. NAPROXEN (ALEVE) [Concomitant]
     Indication: BACK PAIN
  2. METHOTREXATE [Concomitant]
     Indication: PAIN
     Route: 048
  3. FOLIC ACID [Concomitant]
     Indication: PSORIASIS
     Route: 048
  4. HUMIRA [Suspect]
     Indication: PSORIASIS
     Dates: start: 20100801
  5. LORATADINE [Concomitant]
     Indication: HYPERSENSITIVITY
     Route: 048
  6. MULTIPLE VITAMINS [Concomitant]
     Indication: SUPPLEMENTATION THERAPY
     Route: 048

REACTIONS (2)
  - INJECTION SITE PAPULE [None]
  - INJECTION SITE PAIN [None]
